FAERS Safety Report 14289903 (Version 1)
Quarter: 2017Q4

REPORT INFORMATION
  Report Type: Spontaneous
  Country: US (occurrence: US)
  Receive Date: 20171215
  Receipt Date: 20171215
  Transmission Date: 20180321
  Serious: No
  Sender: FDA-Public Use
  Company Number: None

PATIENT
  Sex: Female

DRUGS (1)
  1. OMNICEF [Suspect]
     Active Substance: CEFDINIR
     Indication: URINARY TRACT INFECTION
     Dosage: ?          QUANTITY:1 TEASPOON(S);?
     Route: 048
     Dates: start: 20171209, end: 20171213

REACTIONS (7)
  - Anger [None]
  - Defiant behaviour [None]
  - Middle insomnia [None]
  - Restlessness [None]
  - Aggression [None]
  - Sleep terror [None]
  - Screaming [None]

NARRATIVE: CASE EVENT DATE: 20171212
